FAERS Safety Report 8940028 (Version 3)
Quarter: 2013Q1

REPORT INFORMATION
  Report Type: Report from Study
  Country: JP (occurrence: JP)
  Receive Date: 20121130
  Receipt Date: 20130114
  Transmission Date: 20140127
  Serious: Yes (Death)
  Sender: FDA-Public Use
  Company Number: JP-009507513-1211JPN012718

PATIENT
  Age: 73 Year
  Sex: Female

DRUGS (4)
  1. REMERON [Suspect]
     Indication: DEPRESSION
     Dosage: 15 MG, QD
     Route: 048
     Dates: start: 20110614, end: 20110725
  2. REMERON [Suspect]
     Dosage: 15 MG, BID
     Route: 048
     Dates: start: 20110726, end: 20110915
  3. WYPAX [Suspect]
     Indication: DEPRESSION
     Dosage: 1 MG, QD
     Route: 048
     Dates: start: 20110614, end: 20110915
  4. LENDORMIN [Suspect]
     Indication: DEPRESSION
     Dosage: 0.25 MG, QD
     Route: 048
     Dates: start: 20110614, end: 20110620

REACTIONS (3)
  - Completed suicide [Fatal]
  - Urinary incontinence [Recovered/Resolved]
  - Dizziness [Recovered/Resolved]
